FAERS Safety Report 4571948-2 (Version None)
Quarter: 2005Q1

REPORT INFORMATION
  Report Type: 
  Country: None (occurrence: None)
  Receive Date: 20050202
  Receipt Date: 20050118
  Transmission Date: 20050727
  Serious: Yes (Hospitalization, Other)
  Sender: FDA-Public Use
  Company Number: USA050187922

PATIENT
  Age: 70 Year
  Sex: Female
  Weight: 35 kg

DRUGS (4)
  1. FORTEO [Suspect]
     Indication: OSTEOPOROSIS
     Dosage: 20 UG/1 DAY
     Dates: start: 20040601, end: 20050111
  2. HYDROCHLOROTHIAZIDE [Concomitant]
  3. DEPAKOTE - SLOW RELEASE (VALPROATE SEMISODIUM) [Concomitant]
  4. WELLBUTRIN SR (BUPORPION) [Concomitant]

REACTIONS (8)
  - ABDOMINAL PAIN UPPER [None]
  - ASTHENIA [None]
  - COORDINATION ABNORMAL [None]
  - DYSARTHRIA [None]
  - DYSGRAPHIA [None]
  - TRANSIENT ISCHAEMIC ATTACK [None]
  - TREATMENT NONCOMPLIANCE [None]
  - WEIGHT DECREASED [None]
